FAERS Safety Report 9849713 (Version 2)
Quarter: 2014Q4

REPORT INFORMATION
  Report Type: Spontaneous
  Country: US (occurrence: None)
  Receive Date: 20131226
  Receipt Date: 20141030
  Transmission Date: 20150529
  Serious: Yes (Other)
  Sender: FDA-Public Use
  Company Number: PHEH2013US015198

PATIENT
  Age: 63 Year
  Sex: Male

DRUGS (5)
  1. RECLAST [Suspect]
     Active Substance: ZOLEDRONIC ACID
     Indication: OSTEOPOROSIS
     Dosage: UNK UKN, UNK, INTRAVENOUS
     Route: 042
  2. METFORMIN [Concomitant]
     Active Substance: METFORMIN HYDROCHLORIDE
  3. ANDROGEL [Concomitant]
     Active Substance: TESTOSTERONE
  4. CRESTOR [Concomitant]
     Active Substance: ROSUVASTATIN CALCIUM
  5. SANDOSTATIN [Concomitant]
     Active Substance: OCTREOTIDE ACETATE

REACTIONS (7)
  - Photophobia [None]
  - Eye inflammation [None]
  - Uveitis [None]
  - Eye pain [None]
  - Conjunctival hyperaemia [None]
  - Ocular hyperaemia [None]
  - Anterior chamber cell [None]

NARRATIVE: CASE EVENT DATE: 20130604
